FAERS Safety Report 20358862 (Version 1)
Quarter: 2022Q1

REPORT INFORMATION
  Report Type: Spontaneous
  Country: FR (occurrence: FR)
  Receive Date: 20220120
  Receipt Date: 20220120
  Transmission Date: 20220423
  Serious: Yes (Hospitalization)
  Sender: FDA-Public Use
  Company Number: FR-BIOMARINAP-FR-2022-140900

PATIENT
  Age: 3 Year
  Sex: Female

DRUGS (1)
  1. VIMIZIM [Suspect]
     Active Substance: ELOSULFASE ALFA
     Indication: Mucopolysaccharidosis IV
     Dosage: UNK, QW
     Route: 042

REACTIONS (7)
  - Spinal instability [Unknown]
  - Spinal pain [Unknown]
  - Gait disturbance [Recovered/Resolved]
  - Pain in extremity [Unknown]
  - Neck pain [Unknown]
  - Hypotonia [Unknown]
  - Asthenia [Unknown]
